FAERS Safety Report 10978322 (Version 1)
Quarter: 2015Q2

REPORT INFORMATION
  Report Type: Report from Study
  Country: JP (occurrence: JP)
  Receive Date: 20150402
  Receipt Date: 20150402
  Transmission Date: 20150821
  Serious: Yes (Hospitalization)
  Sender: FDA-Public Use
  Company Number: PHHO2010JP19514

PATIENT
  Age: 20 Year
  Sex: Female

DRUGS (14)
  1. AFINITOR [Suspect]
     Active Substance: EVEROLIMUS
     Dosage: NO TREATMENT
     Dates: start: 20101220, end: 20110103
  2. AFINITOR [Suspect]
     Active Substance: EVEROLIMUS
     Dosage: NO TREATMENT
     Dates: start: 20101125, end: 20101213
  3. MYSLEE [Concomitant]
     Active Substance: ZOLPIDEM TARTRATE
  4. AFINITOR [Suspect]
     Active Substance: EVEROLIMUS
     Dosage: UNK
     Route: 048
     Dates: start: 20110104, end: 20110421
  5. AFINITOR [Suspect]
     Active Substance: EVEROLIMUS
     Dosage: NO TREATMENT
     Dates: start: 20110422, end: 20110501
  6. AFINITOR [Suspect]
     Active Substance: EVEROLIMUS
     Dosage: UNK
     Route: 048
     Dates: start: 20101214, end: 20101219
  7. XYLOCAINE [Concomitant]
     Active Substance: LIDOCAINE HYDROCHLORIDE
  8. CALONAL [Concomitant]
     Active Substance: ACETAMINOPHEN
  9. AFINITOR [Suspect]
     Active Substance: EVEROLIMUS
     Dosage: UNK
     Route: 048
     Dates: start: 20110502
  10. VOLTAREN [Concomitant]
     Active Substance: DICLOFENAC SODIUM
  11. MS REISHIPPU [Concomitant]
     Active Substance: CAMPHOR\MENTHOL\METHYL SALICYLATE
  12. RINDERON V [Concomitant]
     Active Substance: BETAMETHASONE VALERATE
  13. HACHIAZULE [Concomitant]
  14. AFINITOR [Suspect]
     Active Substance: EVEROLIMUS
     Indication: TUBEROUS SCLEROSIS
     Dosage: UNK
     Route: 048
     Dates: start: 20101116, end: 20101124

REACTIONS (4)
  - Abdominal pain [Recovered/Resolved]
  - Enteritis [Recovered/Resolved]
  - Pyrexia [Recovered/Resolved]
  - Colitis [Recovered/Resolved]

NARRATIVE: CASE EVENT DATE: 20101219
